FAERS Safety Report 24994984 (Version 3)
Quarter: 2025Q2

REPORT INFORMATION
  Report Type: Report from Study
  Country: US (occurrence: US)
  Receive Date: 20250221
  Receipt Date: 20250411
  Transmission Date: 20250717
  Serious: Yes (Other)
  Sender: JOHNSON AND JOHNSON
  Company Number: US-JNJFOC-20250207358

PATIENT
  Age: 34 Year
  Sex: Female
  Weight: 124 kg

DRUGS (6)
  1. STELARA [Suspect]
     Active Substance: USTEKINUMAB
     Indication: Crohn^s disease
     Route: 058
     Dates: start: 202107
  2. STELARA [Suspect]
     Active Substance: USTEKINUMAB
     Indication: Crohn^s disease
  3. VYVANSE [Concomitant]
     Active Substance: LISDEXAMFETAMINE DIMESYLATE
  4. XANAX [Concomitant]
     Active Substance: ALPRAZOLAM
  5. VITAMIN B12 [Concomitant]
     Active Substance: CYANOCOBALAMIN
  6. SUTAB [MAGNESIUM SULFATE;POTASSIUM CHLORIDE;SODIUM SULFATE] [Concomitant]
     Route: 048

REACTIONS (4)
  - Crohn^s disease [Not Recovered/Not Resolved]
  - Device issue [Unknown]
  - Device malfunction [Unknown]
  - Product dose omission issue [Unknown]

NARRATIVE: CASE EVENT DATE: 20250202
